FAERS Safety Report 8009120-6 (Version None)
Quarter: 2011Q4

REPORT INFORMATION
  Report Type: 
  Country: None (occurrence: None)
  Receive Date: 20111227
  Receipt Date: 20111222
  Transmission Date: 20120403
  Serious: Yes (Life-Threatening, Hospitalization, Disabling)
  Sender: FDA-Public Use
  Company Number: BR-ASTRAZENECA-2011SE54764

PATIENT
  Age: 59 Year
  Sex: Male
  Weight: 85 kg

DRUGS (2)
  1. ATACAND HCT [Suspect]
     Indication: HYPERTENSION
     Dosage: 16/12.5 MILLIGRAM
     Route: 048
     Dates: start: 20070101, end: 20110701
  2. AMLODIPINE [Concomitant]
     Route: 048
     Dates: start: 20070101

REACTIONS (5)
  - HEMIPARESIS [None]
  - ABASIA [None]
  - CEREBROVASCULAR ACCIDENT [None]
  - WEIGHT DECREASED [None]
  - COMA [None]
